FAERS Safety Report 8352031-7 (Version None)
Quarter: 2012Q2

REPORT INFORMATION
  Report Type: 
  Country: None (occurrence: None)
  Receive Date: 20120510
  Receipt Date: 20120510
  Transmission Date: 20120825
  Serious: Yes (Hospitalization)
  Sender: FDA-Public Use
  Company Number: None

PATIENT
  Age: 65 Year
  Sex: Male
  Weight: 99.5 kg

DRUGS (1)
  1. CEFEPIME [Suspect]
     Indication: OSTEOMYELITIS
     Dosage: 2 GM BID IV
     Route: 042
     Dates: start: 20120330, end: 20120424

REACTIONS (2)
  - PYREXIA [None]
  - NEUTROPENIA [None]
